FAERS Safety Report 6850282-1 (Version None)
Quarter: 2010Q3

REPORT INFORMATION
  Report Type: 
  Country: None (occurrence: None)
  Receive Date: 20100716
  Receipt Date: 20071011
  Transmission Date: 20110219
  Serious: No
  Sender: FDA-Public Use
  Company Number: US-PFIZER INC-2007086581

PATIENT
  Sex: Female
  Weight: 72.7 kg

DRUGS (5)
  1. CHANTIX [Suspect]
     Indication: SMOKING CESSATION THERAPY
     Route: 048
     Dates: start: 20070921
  2. SIMVASTATIN [Concomitant]
     Indication: BLOOD CHOLESTEROL INCREASED
  3. VITAMIN C [Concomitant]
  4. TRAVATAN [Concomitant]
     Indication: GLAUCOMA
  5. GARLIC [Concomitant]

REACTIONS (2)
  - CONSTIPATION [None]
  - NAUSEA [None]
